FAERS Safety Report 6053655-2 (Version None)
Quarter: 2009Q1

REPORT INFORMATION
  Report Type: 
  Country: None (occurrence: None)
  Receive Date: 20090127
  Receipt Date: 20080107
  Transmission Date: 20090719
  Serious: No
  Sender: FDA-Public Use
  Company Number: US-TEVA-166317USA

PATIENT
  Age: 33 Year
  Sex: Female

DRUGS (1)
  1. COPAXONE [Suspect]
     Indication: MULTIPLE SCLEROSIS
     Route: 058
     Dates: end: 20071001

REACTIONS (6)
  - CHEST PAIN [None]
  - DIARRHOEA [None]
  - GAIT DISTURBANCE [None]
  - INJECTION SITE INDURATION [None]
  - RESPIRATORY DISORDER [None]
  - VOMITING [None]
